FAERS Safety Report 15318454 (Version 1)
Quarter: 2018Q3

REPORT INFORMATION
  Report Type: Spontaneous
  Country: US (occurrence: US)
  Receive Date: 20180817
  Receipt Date: 20180817
  Transmission Date: 20181010
  Serious: Yes (Disabling)
  Sender: FDA-Public Use
  Company Number: None

PATIENT
  Age: 41 Year
  Sex: Female
  Weight: 60.3 kg

DRUGS (5)
  1. MACROBID [Suspect]
     Active Substance: NITROFURANTOIN\NITROFURANTOIN MONOHYDRATE
     Indication: MASTITIS
     Dosage: ?          QUANTITY:14 CAPSULE(S);?
     Route: 048
     Dates: start: 20180810, end: 20180815
  2. CALCIUM [Concomitant]
     Active Substance: CALCIUM
  3. VITAMIN C [Concomitant]
     Active Substance: ASCORBIC ACID
  4. OTC PRENATAL VITAMINS [Concomitant]
  5. MACROBID [Suspect]
     Active Substance: NITROFURANTOIN\NITROFURANTOIN MONOHYDRATE
     Indication: URINARY TRACT INFECTION
     Dosage: ?          QUANTITY:14 CAPSULE(S);?
     Route: 048
     Dates: start: 20180810, end: 20180815

REACTIONS (8)
  - Pyrexia [None]
  - Breast pain [None]
  - Asthenia [None]
  - Maternal exposure during breast feeding [None]
  - Chills [None]
  - Myalgia [None]
  - Gait disturbance [None]
  - Therapy cessation [None]

NARRATIVE: CASE EVENT DATE: 20180811
